FAERS Safety Report 10446330 (Version 2)
Quarter: 2015Q2

REPORT INFORMATION
  Report Type: Report from Study
  Country: JP (occurrence: JP)
  Receive Date: 20140911
  Receipt Date: 20150409
  Transmission Date: 20150821
  Serious: Yes (Other)
  Sender: FDA-Public Use
  Company Number: JP-009507513-1409JPN003779

PATIENT
  Age: 54 Year
  Sex: Male
  Weight: 66 kg

DRUGS (6)
  1. LOCHOL (FLUVASTATIN SODIUM) [Concomitant]
     Active Substance: FLUVASTATIN SODIUM
     Indication: HEPATIC CIRRHOSIS
     Dosage: 30 MG, QD, FORMULATION: POR
     Route: 048
     Dates: start: 20130118, end: 20130412
  2. PEGINTRON [Suspect]
     Active Substance: PEGINTERFERON ALFA-2B
     Indication: HEPATIC CIRRHOSIS
     Dosage: 90 MICROGRAM, QW
     Route: 058
     Dates: start: 20130118, end: 20130125
  3. REBETOL [Suspect]
     Active Substance: RIBAVIRIN
     Indication: HEPATIC CIRRHOSIS
     Dosage: 600 MG, QD
     Route: 048
     Dates: start: 20130118, end: 20130412
  4. PEGINTRON [Suspect]
     Active Substance: PEGINTERFERON ALFA-2B
     Dosage: 70 MICROGRAM, QW
     Route: 058
     Dates: start: 20130201, end: 20130215
  5. PEGINTRON [Suspect]
     Active Substance: PEGINTERFERON ALFA-2B
     Dosage: 50 MICROGRAM, QW
     Route: 058
     Dates: start: 20130222, end: 20130315
  6. SELBEX [Concomitant]
     Active Substance: TEPRENONE
     Indication: HEPATIC CIRRHOSIS
     Dosage: 50 MG, TID, FORMULATION: POR
     Route: 048
     Dates: start: 20130118, end: 20130412

REACTIONS (3)
  - Drug eruption [Recovered/Resolved]
  - Platelet count decreased [Recovered/Resolved]
  - Platelet count decreased [Recovered/Resolved]

NARRATIVE: CASE EVENT DATE: 20130201
